FAERS Safety Report 5177035-7 (Version None)
Quarter: 2006Q4

REPORT INFORMATION
  Report Type: 
  Country: None (occurrence: None)
  Receive Date: 20061218
  Receipt Date: 20061018
  Transmission Date: 20070319
  Serious: Yes (Hospitalization)
  Sender: FDA-Public Use
  Company Number: FR-GLAXOSMITHKLINE-B0443644A

PATIENT
  Age: 7 Year
  Sex: Female
  Weight: 16 kg

DRUGS (6)
  1. LANVIS [Suspect]
     Indication: LYMPHOCYTIC LEUKAEMIA
     Route: 048
     Dates: start: 20021209, end: 20021222
  2. ENDOXAN [Concomitant]
     Indication: LYMPHOCYTIC LEUKAEMIA
     Route: 065
     Dates: start: 20021209, end: 20021209
  3. ARACYTINE [Concomitant]
     Indication: LYMPHOCYTIC LEUKAEMIA
     Route: 065
     Dates: start: 20021211, end: 20021220
  4. METHOTREXATE [Concomitant]
     Indication: LYMPHOCYTIC LEUKAEMIA
     Route: 037
     Dates: start: 20021211, end: 20021211
  5. HYDROCORTISONE [Concomitant]
     Indication: LYMPHOCYTIC LEUKAEMIA
     Route: 037
     Dates: start: 20021211, end: 20021211
  6. ARACYTINE [Concomitant]
     Route: 037
     Dates: start: 20061212, end: 20061212

REACTIONS (12)
  - ABDOMINAL DISTENSION [None]
  - APLASIA [None]
  - ASCITES [None]
  - HEPATIC PAIN [None]
  - HEPATOCELLULAR DAMAGE [None]
  - HEPATOMEGALY [None]
  - PALLOR [None]
  - PLEURAL EFFUSION [None]
  - PROTHROMBIN LEVEL DECREASED [None]
  - THROMBOCYTOPENIA [None]
  - VENOOCCLUSIVE LIVER DISEASE [None]
  - VOMITING [None]
